FAERS Safety Report 5969003-X (Version None)
Quarter: 2008Q4

REPORT INFORMATION
  Report Type: 
  Country: None (occurrence: None)
  Receive Date: 20081126
  Receipt Date: 20081117
  Transmission Date: 20090506
  Serious: No
  Sender: FDA-Public Use
  Company Number: FR-ELI_LILLY_AND_COMPANY-FR200811004064

PATIENT
  Age: 36 Year
  Sex: Female
  Weight: 26 kg

DRUGS (4)
  1. ZYPREXA [Suspect]
     Indication: ANOREXIA
     Dosage: 10 MG, DAILY (1/D)
     Route: 048
     Dates: start: 20081112
  2. SSRI [Concomitant]
     Indication: ANOREXIA
     Route: 048
  3. SERESTA [Concomitant]
     Indication: ANOREXIA
     Route: 048
  4. ZOLPIDEM [Concomitant]
     Indication: ANOREXIA
     Route: 048

REACTIONS (1)
  - NEUTROPHIL COUNT DECREASED [None]
